FAERS Safety Report 15397465 (Version 1)
Quarter: 2018Q3

REPORT INFORMATION
  Report Type: Spontaneous
  Country: FR (occurrence: FR)
  Receive Date: 20180918
  Receipt Date: 20180918
  Transmission Date: 20181010
  Serious: Yes (Hospitalization)
  Sender: FDA-Public Use
  Company Number: FR-PFIZER INC-2018373604

PATIENT
  Age: 7 Year
  Sex: Male
  Weight: 28 kg

DRUGS (5)
  1. PURINETHOL [Suspect]
     Active Substance: MERCAPTOPURINE
     Dosage: 75 MG/M2, DAILY
     Route: 048
     Dates: start: 20100727, end: 20111123
  2. BACTRIM [Suspect]
     Active Substance: SULFAMETHOXAZOLE\TRIMETHOPRIM
     Dosage: 37.5 ML, WEEKLY
     Route: 048
     Dates: start: 201007, end: 201110
  3. METHOTREXATE SODIUM. [Suspect]
     Active Substance: METHOTREXATE SODIUM
     Dosage: 27.5 MG/M2, WEEKLY
     Route: 048
     Dates: start: 20100727, end: 20111123
  4. VINCRISTINE SULFATE. [Suspect]
     Active Substance: VINCRISTINE SULFATE
     Dosage: 1.5 MG, WEEKLY
     Route: 042
     Dates: start: 20100727, end: 20110606
  5. CORTANCYL [Concomitant]
     Active Substance: PREDNISONE
     Dosage: 280 MG, UNK
     Route: 048
     Dates: start: 20100727, end: 20110606

REACTIONS (2)
  - Thrombocytopenia [Recovered/Resolved with Sequelae]
  - Portal hypertension [Recovered/Resolved with Sequelae]

NARRATIVE: CASE EVENT DATE: 201109
